FAERS Safety Report 20667607 (Version 1)
Quarter: 2022Q2

REPORT INFORMATION
  Report Type: Spontaneous
  Country: CA (occurrence: CA)
  Receive Date: 20220404
  Receipt Date: 20220404
  Transmission Date: 20220721
  Serious: Yes (Life-Threatening, Hospitalization)
  Sender: FDA-Public Use
  Company Number: CA-TEVA-2022-CA-2022500

PATIENT
  Age: 39 Year
  Sex: Male

DRUGS (15)
  1. FUROSEMIDE [Suspect]
     Active Substance: FUROSEMIDE
     Dosage: 20 MILLIGRAM DAILY;
     Route: 048
  2. SPIRONOLACTONE [Suspect]
     Active Substance: SPIRONOLACTONE
     Dosage: 12.5 MILLIGRAM DAILY;
     Route: 048
  3. GENTAMICIN [Suspect]
     Active Substance: GENTAMICIN
     Dosage: 260 MILLIGRAM DAILY;
     Route: 042
  4. BUTYLSCOPOLAMINE BROMIDE [Concomitant]
     Active Substance: BUTYLSCOPOLAMINE BROMIDE
  5. CEFTRIAXONE [Concomitant]
     Active Substance: CEFTRIAXONE
     Dosage: 2 GRAM DAILY;
     Route: 042
  6. FENOFIBRATE [Concomitant]
     Active Substance: FENOFIBRATE
  7. LACTULOSE [Concomitant]
     Active Substance: LACTULOSE
  8. LANTUS [Concomitant]
     Active Substance: INSULIN GLARGINE
  9. NOVORAPID [Concomitant]
     Active Substance: INSULIN ASPART
  10. PANTOPRAZOLE [Concomitant]
     Active Substance: PANTOPRAZOLE
  11. POTASSIUM [Concomitant]
     Active Substance: POTASSIUM
  12. PREDNISONE [Concomitant]
     Active Substance: PREDNISONE
  13. ROSUVASTATIN [Concomitant]
     Active Substance: ROSUVASTATIN
     Route: 065
  14. SYNTHROID [Concomitant]
     Active Substance: LEVOTHYROXINE SODIUM
  15. RIFAXIMIN [Concomitant]
     Active Substance: RIFAXIMIN

REACTIONS (2)
  - Acute kidney injury [Recovering/Resolving]
  - Haemofiltration [Recovering/Resolving]
